FAERS Safety Report 4502863-8 (Version None)
Quarter: 2004Q4

REPORT INFORMATION
  Report Type: 
  Country: None (occurrence: None)
  Receive Date: 20041112
  Receipt Date: 20041104
  Transmission Date: 20050328
  Serious: Yes (Hospitalization, Other)
  Sender: FDA-Public Use
  Company Number: HQWYE125127OCT04

PATIENT
  Age: 34 Year
  Sex: Female
  Weight: 69.46 kg

DRUGS (4)
  1. NORPLANT SYSTEM [Suspect]
     Indication: CONTRACEPTION
     Dosage: 6 CAPSULES, SUBCUTANEOUS
     Route: 058
     Dates: start: 19930101
  2. NOROC (HYDROCODONE BITARTRATE/PARACETAMOL) [Concomitant]
  3. SOMA [Concomitant]
  4. AMBIEN [Concomitant]

REACTIONS (3)
  - BREAST CANCER FEMALE [None]
  - CERVIX CARCINOMA [None]
  - HAEMORRHAGE [None]
